FAERS Safety Report 5587278-6 (Version None)
Quarter: 2008Q1

REPORT INFORMATION
  Report Type: 
  Country: None (occurrence: None)
  Receive Date: 20080107
  Receipt Date: 20071221
  Transmission Date: 20080703
  Serious: Yes (Hospitalization)
  Sender: FDA-Public Use
  Company Number: VNL_00911_2007

PATIENT
  Sex: Female

DRUGS (6)
  1. APO-GO (APO-GO AMPOULES 10 MG/ML - AMOMORPHINE HYDROCHLORIDE) (NOT SPE [Suspect]
     Indication: PARKINSON'S DISEASE
     Dosage: 60 MG PER DAY FOR 16 WEEKS 2 DAYS, SUBCUTANEOUS
     Route: 058
     Dates: start: 20070816, end: 20071207
  2. MADOPAR LT [Concomitant]
  3. MADOPAR 125 [Concomitant]
  4. AZILECT [Concomitant]
  5. TASMAR [Concomitant]
  6. LEVOCOMP [Concomitant]

REACTIONS (4)
  - CONDITION AGGRAVATED [None]
  - DELUSIONAL DISORDER, UNSPECIFIED TYPE [None]
  - HALLUCINATION, VISUAL [None]
  - MOTOR DYSFUNCTION [None]
